FAERS Safety Report 6550153-4 (Version None)
Quarter: 2010Q1

REPORT INFORMATION
  Report Type: 
  Country: None (occurrence: None)
  Receive Date: 20100125
  Receipt Date: 20100121
  Transmission Date: 20100710
  Serious: Yes (Death, Other)
  Sender: FDA-Public Use
  Company Number: JP-JNJFOC-20100108419

PATIENT
  Age: 6 Decade
  Sex: Male

DRUGS (2)
  1. DUROTEP [Suspect]
     Indication: DRUG USE FOR UNKNOWN INDICATION
     Route: 062
  2. UNKNOWN MEDICATION [Suspect]
     Indication: DRUG USE FOR UNKNOWN INDICATION
     Route: 065

REACTIONS (1)
  - MALIGNANT NEOPLASM PROGRESSION [None]
